FAERS Safety Report 21636984 (Version 5)
Quarter: 2023Q1

REPORT INFORMATION
  Report Type: Report from Study
  Country: NZ (occurrence: None)
  Receive Date: 20221124
  Receipt Date: 20230208
  Transmission Date: 20230417
  Serious: Yes (Hospitalization)
  Sender: FDA-Public Use
  Company Number: NZ-ROCHE-3222704

PATIENT
  Age: 49 Year
  Sex: Female
  Weight: 95.3 kg

DRUGS (14)
  1. ADO-TRASTUZUMAB EMTANSINE [Suspect]
     Active Substance: ADO-TRASTUZUMAB EMTANSINE
     Indication: HER2 positive breast cancer
     Dosage: DOSE LAST STUDY DRUG ADMIN PRIOR AE AND SAE WAS 228 MG/KG. START DATE OF MOST RECENT DOSE OF STUDY D
     Route: 042
     Dates: start: 20220802
  2. ATEZOLIZUMAB [Suspect]
     Active Substance: ATEZOLIZUMAB
     Indication: HER2 positive breast cancer
     Dosage: START DATE OF MOST RECENT DOSE OF STUDY DRUG PRIOR TO AE/SAE 17-NOV-2022
     Route: 041
     Dates: start: 20220802
  3. GOSERELIN [Concomitant]
     Active Substance: GOSERELIN
     Route: 058
     Dates: start: 20220601
  4. LETROZOLE [Concomitant]
     Active Substance: LETROZOLE
     Route: 048
     Dates: start: 20220601
  5. GLICLAZIDE [Concomitant]
     Active Substance: GLICLAZIDE
     Indication: Type 2 diabetes mellitus
     Dates: start: 202107
  6. JARDIANCE [Concomitant]
     Active Substance: EMPAGLIFLOZIN
     Indication: Type 2 diabetes mellitus
     Dates: start: 202107
  7. METFORMIN [Concomitant]
     Active Substance: METFORMIN HYDROCHLORIDE
     Indication: Type 2 diabetes mellitus
     Dates: start: 202207
  8. ACETAMINOPHEN [Concomitant]
     Active Substance: ACETAMINOPHEN
     Indication: Pain
     Dates: start: 20220803
  9. OMEPRAZOLE [Concomitant]
     Active Substance: OMEPRAZOLE
     Indication: Gastrooesophageal reflux disease
     Dates: start: 20220810
  10. DOMPERIDONE [Concomitant]
     Active Substance: DOMPERIDONE
     Indication: Nausea
     Dates: start: 20220822
  11. TRAMADOL [Concomitant]
     Active Substance: TRAMADOL
     Indication: Headache
     Dates: start: 20220822
  12. CALCIUM CARBONATE\SODIUM ALGINATE\SODIUM BICARBONATE [Concomitant]
     Active Substance: CALCIUM CARBONATE\SODIUM ALGINATE\SODIUM BICARBONATE
     Indication: Dyspepsia
     Dates: start: 20220902
  13. SPAN K [Concomitant]
     Indication: Hypokalaemia
     Dates: start: 20221121, end: 20221122
  14. EMPAGLIFLOZIN [Concomitant]
     Active Substance: EMPAGLIFLOZIN
     Indication: Diabetes mellitus
     Dates: start: 20221018

REACTIONS (1)
  - Sepsis [Recovered/Resolved]

NARRATIVE: CASE EVENT DATE: 20221117
